FAERS Safety Report 5869436-6 (Version None)
Quarter: 2008Q3

REPORT INFORMATION
  Report Type: 
  Country: None (occurrence: None)
  Receive Date: 20080829
  Receipt Date: 20080814
  Transmission Date: 20090109
  Serious: Yes (Other)
  Sender: FDA-Public Use
  Company Number: 2008S1014653

PATIENT
  Age: 58 Year
  Sex: Female
  Weight: 71.6683 kg

DRUGS (4)
  1. BENAZEPRIL HYDROCHLORIDE AND HYDROCHLOROTHIAZIDE [Suspect]
     Indication: BLOOD PRESSURE
     Dosage: 20 MG; DAILY; ORAL; 12.5 MG; DAILY, ORAL
     Route: 048
     Dates: start: 20080301, end: 20080630
  2. BENAZEPRIL HYDROCHLORIDE AND HYDROCHLOROTHIAZIDE [Suspect]
     Indication: BLOOD PRESSURE
     Dosage: 20 MG; DAILY; ORAL; 12.5 MG; DAILY, ORAL
     Route: 048
     Dates: start: 20080301, end: 20080630
  3. GLUCOPHAGE [Concomitant]
  4. SYNTHROID [Concomitant]

REACTIONS (13)
  - ABASIA [None]
  - ARTHROPATHY [None]
  - CHOKING SENSATION [None]
  - COUGH [None]
  - DIZZINESS [None]
  - DRY MOUTH [None]
  - FATIGUE [None]
  - FEELING ABNORMAL [None]
  - MUSCULAR WEAKNESS [None]
  - SINUSITIS [None]
  - SPEECH DISORDER [None]
  - VERTIGO [None]
  - VISION BLURRED [None]
